FAERS Safety Report 11919948 (Version 1)
Quarter: 2016Q1

REPORT INFORMATION
  Report Type: Spontaneous
  Country: US (occurrence: None)
  Receive Date: 20160114
  Receipt Date: 20160114
  Transmission Date: 20160526
  Serious: Yes (Hospitalization)
  Sender: FDA-Public Use
  Company Number: None

PATIENT
  Age: 22 Month
  Sex: Male
  Weight: 13.1 kg

DRUGS (1)
  1. SULFAMETHOXAZOLE/TRIMETHOPRIM 200 MG=40 MG/5 ML [Suspect]
     Active Substance: SULFAMETHOXAZOLE\TRIMETHOPRIM
     Indication: SINUSITIS
     Route: 048
     Dates: start: 20151229, end: 20160108

REACTIONS (6)
  - Sinusitis [None]
  - Cough [None]
  - Petechiae [None]
  - Rhinorrhoea [None]
  - Viral infection [None]
  - Immune thrombocytopenic purpura [None]

NARRATIVE: CASE EVENT DATE: 20160108
